FAERS Safety Report 9380812 (Version 3)
Quarter: 2014Q1

REPORT INFORMATION
  Report Type: Spontaneous
  Country: US (occurrence: US)
  Receive Date: 20130702
  Receipt Date: 20140319
  Transmission Date: 20141002
  Serious: Yes (Hospitalization)
  Sender: FDA-Public Use
  Company Number: US-B.I. PHARMACEUTICALS,INC./RIDGEFIELD-2013-BI-18727BP

PATIENT
  Sex: Male
  Weight: 95.25 kg

DRUGS (6)
  1. PRADAXA [Suspect]
     Indication: ATRIAL FIBRILLATION
     Dosage: 300 MG
     Route: 048
     Dates: start: 20110419, end: 20110908
  2. ATENOLOL [Concomitant]
     Route: 065
     Dates: start: 2001
  3. GUANFACINE [Concomitant]
     Route: 065
     Dates: start: 1993
  4. LOSARTAN POTASSIUM [Concomitant]
     Route: 065
     Dates: start: 2009
  5. CITALOPRAM [Concomitant]
     Route: 065
     Dates: start: 2011
  6. CRESTOR [Concomitant]
     Route: 065
     Dates: start: 2011

REACTIONS (1)
  - Upper gastrointestinal haemorrhage [Unknown]
